FAERS Safety Report 6976923-6 (Version None)
Quarter: 2010Q3

REPORT INFORMATION
  Report Type: 
  Country: None (occurrence: None)
  Receive Date: 20100910
  Receipt Date: 20100831
  Transmission Date: 20110219
  Serious: Yes (Hospitalization)
  Sender: FDA-Public Use
  Company Number: CA-JNJFOC-20100900730

PATIENT
  Sex: Male
  Weight: 53.52 kg

DRUGS (11)
  1. REMICADE [Suspect]
     Indication: CROHN'S DISEASE
  2. REMICADE [Suspect]
  3. IMURAN [Concomitant]
  4. ASACOL [Concomitant]
  5. ASPIRIN [Concomitant]
  6. ATIVAN [Concomitant]
  7. PANTOPRAZOLE [Concomitant]
  8. ACTONEL [Concomitant]
  9. HYDROCHLOROTHIAZIDE [Concomitant]
  10. TRANDOLAPRIL [Concomitant]
  11. FER-IN-SOL [Concomitant]

REACTIONS (1)
  - HOSPITALISATION [None]
